FAERS Safety Report 4597846-6 (Version None)
Quarter: 2005Q1

REPORT INFORMATION
  Report Type: 
  Country: None (occurrence: None)
  Receive Date: 20050303
  Receipt Date: 20041130
  Transmission Date: 20050727
  Serious: Yes (Life-Threatening, Hospitalization)
  Sender: FDA-Public Use
  Company Number: DE-MERCK-0412DEU00001

PATIENT
  Age: 68 Year
  Sex: Male
  Weight: 109 kg

DRUGS (8)
  1. PRIMAXIN [Suspect]
     Indication: FEBRILE NEUTROPENIA
     Route: 051
     Dates: start: 20041119, end: 20041119
  2. [THERAPY UNSPECIFIED] [Concomitant]
     Indication: HYPERTENSION
     Route: 065
     Dates: end: 20041130
  3. ACYCLOVIR [Concomitant]
     Route: 065
     Dates: start: 20041105, end: 20041123
  4. ALLOPURINOL [Concomitant]
     Route: 065
     Dates: end: 20041123
  5. TRETINOIN [Concomitant]
     Indication: CHEMOTHERAPY
     Route: 048
     Dates: start: 20041115, end: 20041209
  6. VALPROATE SODIUM [Concomitant]
     Indication: PROPHYLAXIS
     Route: 065
     Dates: start: 20041118, end: 20041122
  7. PIPERACILLIN SODIUM AND TAZOBACTAM SODIUM [Concomitant]
     Indication: FEBRILE NEUTROPENIA
     Route: 065
     Dates: start: 20041114, end: 20041119
  8. VANCOMYCIN [Concomitant]
     Indication: FEBRILE NEUTROPENIA
     Route: 065
     Dates: start: 20041119, end: 20041121

REACTIONS (3)
  - DEPRESSED LEVEL OF CONSCIOUSNESS [None]
  - DISORIENTATION [None]
  - SOMNOLENCE [None]
